FAERS Safety Report 18468541 (Version 1)
Quarter: 2020Q4

REPORT INFORMATION
  Report Type: Spontaneous
  Country: CN (occurrence: CN)
  Receive Date: 20201105
  Receipt Date: 20201105
  Transmission Date: 20210114
  Serious: Yes (Disabling)
  Sender: FDA-Public Use
  Company Number: CN-009507513-2011CHN001386

PATIENT
  Age: 82 Year
  Sex: Male
  Weight: 50.7 kg

DRUGS (6)
  1. CEFOPERAZONE SODIUM (+) SULBACTAM SODIUM [Suspect]
     Active Substance: CEFOPERAZONE SODIUM\SULBACTAM SODIUM
     Indication: ANTI-INFECTIVE THERAPY
     Dosage: 2 GRAM, TID
     Route: 041
     Dates: start: 20201002, end: 20201008
  2. METHOXYPHENAMINE HYDROCHLORIDE [Suspect]
     Active Substance: METHOXYPHENAMINE HYDROCHLORIDE
     Indication: ANTITUSSIVE THERAPY
     Dosage: 1 CAPSULE, QD,NASAL FEEDING
     Dates: start: 20201004, end: 20201009
  3. SINGULAIR [Suspect]
     Active Substance: MONTELUKAST SODIUM
     Indication: ASTHMA
  4. SINGULAIR [Suspect]
     Active Substance: MONTELUKAST SODIUM
     Indication: EMPHYSEMA
  5. ESOMEPRAZOLE SODIUM. [Suspect]
     Active Substance: ESOMEPRAZOLE SODIUM
     Indication: ABDOMINAL DISCOMFORT
     Dosage: 40 MILLIGRAM, QD
     Route: 041
     Dates: start: 20201002, end: 20201009
  6. SINGULAIR [Suspect]
     Active Substance: MONTELUKAST SODIUM
     Indication: BRONCHITIS CHRONIC
     Dosage: 4MG, QD, CHEWABLE TABLETS, NASAL FEEDING
     Dates: start: 20201004, end: 20201009

REACTIONS (1)
  - Hepatic function abnormal [Recovering/Resolving]

NARRATIVE: CASE EVENT DATE: 20201006
